FAERS Safety Report 9353339 (Version 2)
Quarter: 2013Q4

REPORT INFORMATION
  Report Type: Spontaneous
  Country: US (occurrence: US)
  Receive Date: 20130618
  Receipt Date: 20131022
  Transmission Date: 20140711
  Serious: Yes (Other)
  Sender: FDA-Public Use
  Company Number: US-BRISTOL-MYERS SQUIBB COMPANY-19006287

PATIENT
  Sex: Male

DRUGS (1)
  1. ELIQUIS [Suspect]

REACTIONS (2)
  - Haemorrhage [Recovered/Resolved]
  - Renal pain [Not Recovered/Not Resolved]
